FAERS Safety Report 5854659-2 (Version None)
Quarter: 2008Q3

REPORT INFORMATION
  Report Type: 
  Country: None (occurrence: None)
  Receive Date: 20080822
  Receipt Date: 20080812
  Transmission Date: 20090109
  Serious: Yes (Other)
  Sender: FDA-Public Use
  Company Number: US-PFIZER INC-2008067447

PATIENT
  Sex: Female

DRUGS (4)
  1. NEURONTIN [Suspect]
  2. ALL OTHER THERAPEUTIC PRODUCTS [Suspect]
  3. POLYGAM [Suspect]
  4. PANGLOBULIN [Suspect]

REACTIONS (2)
  - DELUSION [None]
  - OBSTRUCTIVE AIRWAYS DISORDER [None]
